FAERS Safety Report 4722968-6 (Version None)
Quarter: 2005Q3

REPORT INFORMATION
  Report Type: 
  Country: None (occurrence: None)
  Receive Date: 20050722
  Receipt Date: 20050310
  Transmission Date: 20060218
  Serious: No
  Sender: FDA-Public Use
  Company Number: DE-MERCK-0503DEU00102

PATIENT
  Age: 78 Year
  Sex: Male

DRUGS (2)
  1. VIOXX [Suspect]
     Route: 048
     Dates: start: 20040121
  2. VIOXX [Suspect]
     Route: 048
     Dates: start: 20010305

REACTIONS (2)
  - CEREBRAL THROMBOSIS [None]
  - LACUNAR INFARCTION [None]
